FAERS Safety Report 21839232 (Version 1)
Quarter: 2023Q1

REPORT INFORMATION
  Report Type: Spontaneous
  Country: US (occurrence: None)
  Receive Date: 20230107
  Receipt Date: 20230107
  Transmission Date: 20230418
  Serious: Yes (unspecified)
  Sender: FDA-Public Use
  Company Number: None

PATIENT
  Age: 60 Year
  Sex: Male
  Weight: 74 kg

DRUGS (1)
  1. ALIROCUMAB [Suspect]
     Active Substance: ALIROCUMAB
     Dosage: FREQUENCY: AS DIRECTED
     Route: 058
     Dates: start: 20220915, end: 20221117

REACTIONS (1)
  - Alopecia [None]

NARRATIVE: CASE EVENT DATE: 20221117
